FAERS Safety Report 5964961-1 (Version None)
Quarter: 2008Q4

REPORT INFORMATION
  Report Type: 
  Country: None (occurrence: None)
  Receive Date: 20081121
  Receipt Date: 20081110
  Transmission Date: 20090506
  Serious: Yes (Hospitalization, Other)
  Sender: FDA-Public Use
  Company Number: 08H-163-0315177-00

PATIENT
  Age: 12 Year
  Sex: Male
  Weight: 55.8 kg

DRUGS (17)
  1. SUCCINYLCHOLINE CHLORIDE [Suspect]
     Indication: MUSCLE RELAXANT THERAPY
     Dosage: 1 MG/KG
  2. SEVOFLURANE [Suspect]
     Indication: INDUCTION OF ANAESTHESIA
     Dosage: INHALATION
     Route: 055
  3. SALMETEROL (SALMETEROL) [Concomitant]
  4. ACETAMINOPHEN-OXYODONE (OXYCOCET) [Concomitant]
  5. HYDROXYZINE [Concomitant]
  6. DOCUSATE (DOCUSATE) [Concomitant]
  7. ASCORBIC ACID [Concomitant]
  8. 30% OXYGEN (OXYGEN) [Concomitant]
  9. 70% NITROUS OXIDE (NITROUS OXIDE) [Concomitant]
  10. PROPOFOL [Concomitant]
  11. TRANEXAMIC ACID (TRANEXAMIC ACID) [Concomitant]
  12. REMIFENTANIL (REMIFENTANIL) [Concomitant]
  13. ISOFLURANE [Concomitant]
  14. NITROPRUSSIDE (NITROPRUSSIDE) [Concomitant]
  15. MIRALAX [Concomitant]
  16. RINGER'S [Concomitant]
  17. RED BLOOD CELLS [Concomitant]

REACTIONS (12)
  - BLOOD CREATINE PHOSPHOKINASE INCREASED [None]
  - CHROMATURIA [None]
  - HAEMATOCRIT DECREASED [None]
  - HAEMOGLOBIN DECREASED [None]
  - HYPERTHERMIA MALIGNANT [None]
  - INFUSION RELATED REACTION [None]
  - MEAN ARTERIAL PRESSURE INCREASED [None]
  - METABOLIC ACIDOSIS [None]
  - MUSCLE RIGIDITY [None]
  - MUSCULAR WEAKNESS [None]
  - PROCEDURAL COMPLICATION [None]
  - RHABDOMYOLYSIS [None]
